FAERS Safety Report 23305644 (Version 1)
Quarter: 2023Q4

REPORT INFORMATION
  Report Type: Spontaneous
  Country: CN (occurrence: CN)
  Receive Date: 20231218
  Receipt Date: 20231218
  Transmission Date: 20240109
  Serious: Yes (Life-Threatening, Hospitalization, Other)
  Sender: FDA-Public Use
  Company Number: None

PATIENT
  Age: 3 Year
  Sex: Female

DRUGS (3)
  1. CYCLOPHOSPHAMIDE [Suspect]
     Active Substance: CYCLOPHOSPHAMIDE
     Indication: Retroperitoneal cancer
     Dosage: 1165.5 G, ONE TIME IN ONE DAY, NCCN COG PROTOCOL CYCLE 1
     Route: 041
     Dates: start: 20230607, end: 20230608
  2. ADRIAMYCIN [Suspect]
     Active Substance: DOXORUBICIN HYDROCHLORIDE
     Indication: Retroperitoneal cancer
     Dosage: 13 MG, ONE TIME IN ONE DAY, NCCN COG PROTOCOL CYCLE 1
     Route: 041
     Dates: start: 20230608, end: 20231209
  3. VINCRISTINE [Suspect]
     Active Substance: VINCRISTINE
     Indication: Retroperitoneal cancer
     Dosage: 0.37 MG, ONE TIME IN ONE DAY, NCCN COG PROTOCOL CYCLE 1
     Route: 041
     Dates: start: 20230607, end: 20231209

REACTIONS (4)
  - Retroperitoneal cancer [Unknown]
  - Condition aggravated [Unknown]
  - Sepsis [Recovering/Resolving]
  - Pyrexia [Unknown]

NARRATIVE: CASE EVENT DATE: 20230617
